FAERS Safety Report 5162310-2 (Version None)
Quarter: 2006Q4

REPORT INFORMATION
  Report Type: 
  Country: None (occurrence: None)
  Receive Date: 20060919
  Receipt Date: 20060622
  Transmission Date: 20070319
  Serious: No
  Sender: FDA-Public Use
  Company Number: 2006US001535

PATIENT
  Sex: Male

DRUGS (1)
  1. VESICARE [Suspect]
     Indication: DRUG USE FOR UNKNOWN INDICATION
     Dosage: 10 MG, UID/QD, ORAL
     Route: 048
     Dates: start: 20060301

REACTIONS (1)
  - FLATULENCE [None]
